FAERS Safety Report 13469082 (Version 3)
Quarter: 2017Q3

REPORT INFORMATION
  Report Type: Spontaneous
  Country: US (occurrence: US)
  Receive Date: 20170421
  Receipt Date: 20170705
  Transmission Date: 20171127
  Serious: Yes (Other)
  Sender: FDA-Public Use
  Company Number: US-PFIZER INC-2017091673

PATIENT
  Age: 76 Year
  Sex: Female
  Weight: 59 kg

DRUGS (2)
  1. ADVIL [Suspect]
     Active Substance: IBUPROFEN
     Indication: ANKYLOSING SPONDYLITIS
     Dosage: 200 MG, TWICE A DAY
     Route: 048
  2. ADVIL [Suspect]
     Active Substance: IBUPROFEN
     Indication: PAIN

REACTIONS (5)
  - Accidental exposure to product [Unknown]
  - Product quality issue [Unknown]
  - Fall [Unknown]
  - Poor quality drug administered [Unknown]
  - Pelvic fracture [Unknown]

NARRATIVE: CASE EVENT DATE: 2016
